FAERS Safety Report 4957308-0 (Version None)
Quarter: 2006Q1

REPORT INFORMATION
  Report Type: 
  Country: None (occurrence: None)
  Receive Date: 20060323
  Receipt Date: 20060306
  Transmission Date: 20060701
  Serious: Yes (Hospitalization, Other)
  Sender: FDA-Public Use
  Company Number: US200601001512

PATIENT
  Age: 81 Year
  Sex: Female
  Weight: 80.3 kg

DRUGS (13)
  1. HUMALOG MIX 75/25 [Suspect]
     Indication: DIABETES MELLITUS NON-INSULIN-DEPENDENT
     Dosage: SEE IMAGE
  2. HUMALOG PEN [Suspect]
     Indication: DIABETES MELLITUS NON-INSULIN-DEPENDENT
     Dosage: 14 U, DAILY (1/D)
  3. HUMULIN N [Suspect]
     Indication: DIABETES MELLITUS NON-INSULIN-DEPENDENT
     Dosage: 20 U, EACH EVENING
  4. HUMALOG MIX 25L/75NPL PEN [Concomitant]
  5. HUMALOG PEN [Concomitant]
  6. HUMULIN N [Concomitant]
  7. URSODIOL (URSODEOXYCHOLIC ACID) [Concomitant]
  8. PRECOSE [Concomitant]
  9. FOLIC ACID [Concomitant]
  10. AVALIDE [Concomitant]
  11. NEXIUM [Concomitant]
  12. ASA TABS (ACETYLSALICYLIC ACID) [Concomitant]
  13. FOSAMAX /ITA/ (ALENDRONATE SODIUM) [Concomitant]

REACTIONS (30)
  - ABDOMINAL PAIN UPPER [None]
  - ALOPECIA [None]
  - ANOREXIA [None]
  - ANXIETY [None]
  - ATELECTASIS [None]
  - BLOOD GLUCOSE INCREASED [None]
  - CARDIAC MURMUR [None]
  - CHEST PAIN [None]
  - DECREASED ACTIVITY [None]
  - DEHYDRATION [None]
  - DEPRESSION [None]
  - DIFFUSE LARGE B-CELL LYMPHOMA [None]
  - DIZZINESS [None]
  - FLUID RETENTION [None]
  - HEART VALVE CALCIFICATION [None]
  - HYPOGLYCAEMIA [None]
  - HYPOTRICHOSIS [None]
  - LACRIMATION INCREASED [None]
  - NAUSEA [None]
  - NEUTROPENIA [None]
  - OEDEMA PERIPHERAL [None]
  - PAIN [None]
  - PALPITATIONS [None]
  - PANCYTOPENIA [None]
  - PHARMACEUTICAL PRODUCT COMPLAINT [None]
  - PYREXIA [None]
  - RHINORRHOEA [None]
  - SCAR [None]
  - SPLENOMEGALY [None]
  - UPPER LIMB FRACTURE [None]
